FAERS Safety Report 7242112-3 (Version None)
Quarter: 2011Q1

REPORT INFORMATION
  Report Type: 
  Country: None (occurrence: None)
  Receive Date: 20110124
  Receipt Date: 20110120
  Transmission Date: 20110831
  Serious: Yes (Hospitalization)
  Sender: FDA-Public Use
  Company Number: BE-PFIZER INC-2010136488

PATIENT
  Age: 28 Year
  Sex: Female
  Weight: 43 kg

DRUGS (4)
  1. SALAZOPYRIN [Suspect]
     Dosage: 500 MG 2 TABLETS A DAY
     Route: 048
     Dates: start: 20101001, end: 20101021
  2. SALAZOPYRIN [Suspect]
     Dosage: 500 MG 3 TABLETS A DAY FOR 7 TABLETS
     Route: 048
     Dates: start: 20101001, end: 20101001
  3. SALAZOPYRIN [Suspect]
     Indication: POLYARTHRITIS
     Dosage: 500 MG, 1X/DAY FOR 7 DAYS
     Route: 048
     Dates: start: 20101012, end: 20101001
  4. MEDROL [Concomitant]
     Indication: RHEUMATOID ARTHRITIS
     Dosage: 16 MG, 1X/DAY
     Route: 048

REACTIONS (1)
  - DRUG RASH WITH EOSINOPHILIA AND SYSTEMIC SYMPTOMS [None]
